FAERS Safety Report 4596734-9 (Version None)
Quarter: 2005Q1

REPORT INFORMATION
  Report Type: 
  Country: None (occurrence: None)
  Receive Date: 20050228
  Receipt Date: 20050221
  Transmission Date: 20050727
  Serious: Yes (Hospitalization, Other)
  Sender: FDA-Public Use
  Company Number: DEWYE443521FEB05

PATIENT
  Age: 50 Year
  Sex: Male

DRUGS (4)
  1. VENLAFAXINE HCL [Suspect]
     Indication: SOMATISATION DISORDER
     Dosage: 75 MG ORAL
     Route: 048
     Dates: start: 20030718, end: 20030724
  2. REMERGIL (MIRTAZAPINE) [Suspect]
     Indication: SOMATISATION DISORDER
     Dosage: 45 MG ORAL
     Route: 048
     Dates: start: 20030630, end: 20030718
  3. PANTOPRAZOLE SODIUM [Concomitant]
  4. MARCUMAR [Concomitant]

REACTIONS (2)
  - PHOTOSENSITIVITY REACTION [None]
  - VASCULITIS [None]
